APPROVED DRUG PRODUCT: AMIODARONE HYDROCHLORIDE
Active Ingredient: AMIODARONE HYDROCHLORIDE
Strength: 400MG
Dosage Form/Route: TABLET;ORAL
Application: A075389 | Product #003 | TE Code: AB
Applicant: DR REDDYS LABORATORIES SA
Approved: Dec 28, 2017 | RLD: No | RS: No | Type: RX